FAERS Safety Report 6588729-0 (Version None)
Quarter: 2010Q1

REPORT INFORMATION
  Report Type: 
  Country: None (occurrence: None)
  Receive Date: 20100218
  Receipt Date: 20100205
  Transmission Date: 20100710
  Serious: Yes (Other)
  Sender: FDA-Public Use
  Company Number: US-JNJFOC-20100206308

PATIENT
  Age: 46 Year
  Sex: Female

DRUGS (3)
  1. EXTRA STRENGTH TYLENOL PM [Suspect]
     Indication: SLEEP DISORDER
     Route: 048
  2. UNSPECIFIED SLEEPING AGENTS [Concomitant]
     Indication: SLEEP DISORDER
  3. ANTI-ANXIETY MEDICATION (NOS) [Concomitant]
     Indication: ANXIETY

REACTIONS (2)
  - ASTHMA [None]
  - PRODUCT QUALITY ISSUE [None]
